FAERS Safety Report 6734953-3 (Version None)
Quarter: 2010Q2

REPORT INFORMATION
  Report Type: 
  Country: None (occurrence: None)
  Receive Date: 20100521
  Receipt Date: 20100510
  Transmission Date: 20101027
  Serious: Yes (Other)
  Sender: FDA-Public Use
  Company Number: US-PFIZER INC-2010056147

PATIENT
  Age: 24 Year
  Sex: Male

DRUGS (2)
  1. NEURONTIN [Suspect]
     Indication: AUTISM
     Dosage: 600 MG
  2. NEURONTIN [Suspect]
     Dosage: 300 MG

REACTIONS (6)
  - COGNITIVE DISORDER [None]
  - DRUG INEFFECTIVE [None]
  - HALLUCINATION [None]
  - MEMORY IMPAIRMENT [None]
  - SELF INJURIOUS BEHAVIOUR [None]
  - SOPOR [None]
